FAERS Safety Report 10358575 (Version 1)
Quarter: 2014Q3

REPORT INFORMATION
  Report Type: Spontaneous
  Country: US (occurrence: US)
  Receive Date: 20140803
  Receipt Date: 20140803
  Transmission Date: 20150326
  Serious: Yes (Hospitalization, Other)
  Sender: FDA-Public Use
  Company Number: PHHY2014US092641

PATIENT
  Age: 9 Year
  Sex: Female

DRUGS (2)
  1. MESALAMINE. [Concomitant]
     Active Substance: MESALAMINE
     Indication: CROHN^S DISEASE
  2. PREDNISONE. [Suspect]
     Active Substance: PREDNISONE
     Indication: CROHN^S DISEASE

REACTIONS (2)
  - Crohn^s disease [Unknown]
  - Pneumatosis intestinalis [Recovering/Resolving]
